FAERS Safety Report 9588381 (Version 1)
Quarter: 2013Q4

REPORT INFORMATION
  Report Type: Spontaneous
  Country: US (occurrence: US)
  Receive Date: 20131003
  Receipt Date: 20131003
  Transmission Date: 20140711
  Serious: No
  Sender: FDA-Public Use
  Company Number: US-AMGEN-USASP2012063807

PATIENT
  Age: 57 Year
  Sex: Female
  Weight: 98.87 kg

DRUGS (11)
  1. ENBREL [Suspect]
     Indication: RHEUMATOID ARTHRITIS
     Dosage: 25 MG, 2 TIMES/WK
     Route: 058
  2. VITAMIN A + D                      /00343801/ [Concomitant]
     Dosage: UNK
  3. CALCIUM [Concomitant]
     Dosage: 500 UNK, UNK
  4. LISINOPRIL [Concomitant]
     Dosage: 5 MG, UNK
  5. SINGULAIR [Concomitant]
     Dosage: 10 MG, UNK
  6. LEVOTHYROXIN [Concomitant]
     Dosage: 100 MUG, UNK
  7. NEXIUM                             /01479302/ [Concomitant]
     Dosage: 20 MG, UNK
  8. METHYLPRED [Concomitant]
     Dosage: 16 MG, UNK
  9. SPIRIVA [Concomitant]
     Dosage: UNK
  10. CALCIUM D                          /00944201/ [Concomitant]
     Dosage: UNK
  11. VITAMIN D                          /00107901/ [Concomitant]
     Dosage: 400 UNK, UNK

REACTIONS (2)
  - Fatigue [Unknown]
  - Injection site bruising [Unknown]
